FAERS Safety Report 4311097-1 (Version None)
Quarter: 2004Q1

REPORT INFORMATION
  Report Type: 
  Country: None (occurrence: None)
  Receive Date: 20040302
  Receipt Date: 20040218
  Transmission Date: 20041129
  Serious: Yes (Death)
  Sender: FDA-Public Use
  Company Number: 04P-122-0251060

PATIENT
  Age: 81 Year
  Sex: Male

DRUGS (7)
  1. ISOPTIN [Suspect]
     Indication: ATRIAL FIBRILLATION
     Dosage: 120 MG, 2 IN 1 D, PER ORAL
     Route: 048
     Dates: start: 20030703, end: 20030709
  2. PHENOXYMETHYLPENICILLIN [Suspect]
     Indication: PNEUMONIA
     Dosage: PER ORAL
     Route: 048
     Dates: start: 20030707, end: 20030711
  3. WARFARIN SODIUM [Suspect]
     Indication: CARDIOVASCULAR DISORDER
     Dates: start: 20030704, end: 20030708
  4. WARFARIN SODIUM [Suspect]
     Indication: PROPHYLAXIS
     Dates: start: 20030704, end: 20030708
  5. ALENDRONATE SODIUM [Concomitant]
  6. VENLAFAXINE HCL [Concomitant]
  7. ALLOYL-3 [Concomitant]

REACTIONS (7)
  - DEHYDRATION [None]
  - DIARRHOEA [None]
  - ELECTROLYTE IMBALANCE [None]
  - HEPATIC NECROSIS [None]
  - HYPOTENSION [None]
  - LIVER DISORDER [None]
  - RENAL IMPAIRMENT [None]
